FAERS Safety Report 4310622-4 (Version None)
Quarter: 2004Q1

REPORT INFORMATION
  Report Type: 
  Country: None (occurrence: None)
  Receive Date: 20040301
  Receipt Date: 20031028
  Transmission Date: 20041129
  Serious: No
  Sender: FDA-Public Use
  Company Number: WAES 0310USA03096

PATIENT
  Age: 76 Year
  Sex: Female

DRUGS (5)
  1. ZETIA [Suspect]
     Indication: BLOOD CHOLESTEROL INCREASED
     Dosage: 10 MG/DAILY/PO
     Route: 048
     Dates: start: 20031025
  2. LEVOXYL [Concomitant]
  3. PNEUMOVAX (PNEMOCOCCAL 14V POLY10/24/03) [Concomitant]
  4. TAGAMET [Concomitant]
  5. INFLUENZA VIRUS VACCINE [Concomitant]

REACTIONS (4)
  - ABDOMINAL DISCOMFORT [None]
  - CHROMATURIA [None]
  - HEADACHE [None]
  - NAUSEA [None]
